FAERS Safety Report 9866857 (Version 1)
Quarter: 2014Q1

REPORT INFORMATION
  Report Type: Spontaneous
  Country: US (occurrence: None)
  Receive Date: 20140131
  Receipt Date: 20140131
  Transmission Date: 20141002
  Serious: Yes (Death)
  Sender: FDA-Public Use
  Company Number: 2014AP000742

PATIENT
  Age: 59 Year
  Sex: Female

DRUGS (8)
  1. VERAPAMIL HYDROCHLORIDE [Suspect]
     Dosage: ; PO
     Route: 048
  2. SERTRALINE HYDROCHLORIDE TABLETS [Suspect]
     Dosage: ; PO
     Route: 048
  3. GABAPENTIN [Suspect]
  4. LEVETIRACETAM [Suspect]
     Dosage: ; PO
     Route: 048
  5. PRAMIPEXOLE DIHYDROCHLORIDE [Suspect]
     Dosage: ; PO
     Route: 048
  6. NEBIVOLOL [Suspect]
     Dosage: ; PO
     Route: 048
  7. ALBUTEROL W/ IPRATROPIUM [Suspect]
     Dosage: ; PO
     Route: 048
  8. DANAZOL [Suspect]
     Dosage: ; PO
     Route: 048

REACTIONS (1)
  - Completed suicide [None]
